FAERS Safety Report 5074973-0 (Version None)
Quarter: 2006Q3

REPORT INFORMATION
  Report Type: 
  Country: None (occurrence: None)
  Receive Date: 20060809
  Receipt Date: 20060622
  Transmission Date: 20061208
  Serious: Yes (Hospitalization)
  Sender: FDA-Public Use
  Company Number: JP-BRISTOL-MYERS SQUIBB COMPANY-13423439

PATIENT
  Age: 65 Year
  Sex: Male

DRUGS (6)
  1. MITOMYCIN [Suspect]
     Indication: BLADDER CANCER
     Route: 043
     Dates: start: 20060228, end: 20060510
  2. IMMUCYST [Suspect]
     Indication: BLADDER CANCER
     Route: 043
     Dates: start: 20050101, end: 20050101
  3. BACILLUS CALMETTE-GUERIN [Concomitant]
     Route: 043
     Dates: start: 19960101, end: 20000101
  4. CISPLATIN [Concomitant]
     Route: 042
     Dates: start: 19960101
  5. EPIRUBICIN [Concomitant]
     Route: 042
     Dates: start: 19960101
  6. DOXORUBICIN [Concomitant]
     Route: 043
     Dates: start: 19960101

REACTIONS (1)
  - CYSTITIS NONINFECTIVE [None]
